FAERS Safety Report 7286346-0 (Version None)
Quarter: 2011Q1

REPORT INFORMATION
  Report Type: 
  Country: None (occurrence: None)
  Receive Date: 20110210
  Receipt Date: 20110131
  Transmission Date: 20110831
  Serious: Yes (Death, Hospitalization, Other)
  Sender: FDA-Public Use
  Company Number: US-BAXTER-2011BH002518

PATIENT
  Age: 81 Year
  Sex: Male

DRUGS (1)
  1. DIANEAL [Suspect]
     Indication: PERITONEAL DIALYSIS
     Route: 033
     Dates: end: 20110110

REACTIONS (4)
  - GANGRENE [None]
  - LIMB INJURY [None]
  - POST PROCEDURAL COMPLICATION [None]
  - SEPSIS [None]
